FAERS Safety Report 11657300 (Version 3)
Quarter: 2015Q4

REPORT INFORMATION
  Report Type: Report from Study
  Country: US (occurrence: US)
  Receive Date: 20151023
  Receipt Date: 20151028
  Transmission Date: 20160304
  Serious: No
  Sender: FDA-Public Use
  Company Number: US-ABBVIE-14P-163-1309922-00

PATIENT
  Age: 28 Year
  Sex: Female
  Weight: 77.18 kg

DRUGS (7)
  1. MEDROL [Suspect]
     Active Substance: METHYLPREDNISOLONE
     Indication: RASH
     Route: 065
     Dates: start: 201410, end: 201410
  2. LUPRON DEPOT [Suspect]
     Active Substance: LEUPROLIDE ACETATE
     Indication: OVARIAN CYST
     Route: 030
     Dates: start: 201409
  3. CELEBREX [Concomitant]
     Active Substance: CELECOXIB
     Indication: INFLAMMATION
     Dates: end: 201410
  4. FLAGYL [Suspect]
     Active Substance: METRONIDAZOLE\METRONIDAZOLE HYDROCHLORIDE
     Indication: WHITE BLOOD CELL COUNT INCREASED
     Route: 065
     Dates: start: 201410, end: 201410
  5. PRILOSEC [Concomitant]
     Active Substance: OMEPRAZOLE MAGNESIUM
     Indication: DYSPEPSIA
  6. NORETHINDRONE. [Concomitant]
     Active Substance: NORETHINDRONE
     Indication: HORMONE THERAPY
  7. MECLIZINE [Concomitant]
     Active Substance: MECLIZINE\MECLIZINE HYDROCHLORIDE
     Indication: DIZZINESS
     Dates: end: 201410

REACTIONS (9)
  - Vulvovaginal dryness [Not Recovered/Not Resolved]
  - Rash [Recovered/Resolved]
  - Pelvic pain [Not Recovered/Not Resolved]
  - Libido decreased [Recovered/Resolved]
  - Peripheral swelling [Recovered/Resolved]
  - Off label use [Not Recovered/Not Resolved]
  - Joint swelling [Not Recovered/Not Resolved]
  - White blood cell count increased [Recovered/Resolved]
  - White blood cell count increased [Recovered/Resolved]

NARRATIVE: CASE EVENT DATE: 201409
